FAERS Safety Report 10272543 (Version 1)
Quarter: 2014Q2

REPORT INFORMATION
  Report Type: Spontaneous
  Country: US (occurrence: None)
  Receive Date: 20140627
  Receipt Date: 20140627
  Transmission Date: 20141212
  Serious: Yes (Other)
  Sender: FDA-Public Use
  Company Number: None

PATIENT
  Sex: Female
  Weight: 75.3 kg

DRUGS (1)
  1. LEVOTHYROXINE 50 MCG [Suspect]
     Indication: HYPOTHYROIDISM
     Dates: start: 20140130, end: 20140626

REACTIONS (5)
  - Fluid retention [None]
  - Depression [None]
  - Asthenia [None]
  - Therapeutic response changed [None]
  - Product substitution issue [None]
